FAERS Safety Report 22041637 (Version 1)
Quarter: 2023Q1

REPORT INFORMATION
  Report Type: Spontaneous
  Country: US (occurrence: US)
  Receive Date: 20230227
  Receipt Date: 20230227
  Transmission Date: 20230418
  Serious: No
  Sender: FDA-Public Use
  Company Number: US-MYLANLABS-2023M1017515

PATIENT
  Sex: Female

DRUGS (1)
  1. XANAX [Suspect]
     Active Substance: ALPRAZOLAM
     Indication: Vertigo
     Dosage: 1 MILLIGRAM, BID (ONE TABLET BY MOUTH TWICE DAILY)
     Route: 048

REACTIONS (4)
  - Illness [Unknown]
  - Nausea [Unknown]
  - Off label use [Unknown]
  - Product taste abnormal [Unknown]
